FAERS Safety Report 24713687 (Version 1)
Quarter: 2024Q4

REPORT INFORMATION
  Report Type: Spontaneous
  Country: US (occurrence: US)
  Receive Date: 20241209
  Receipt Date: 20241209
  Transmission Date: 20250114
  Serious: No
  Sender: REGENERON
  Company Number: US-REGENERON PHARMACEUTICALS, INC.-2024-049392

PATIENT
  Sex: Male

DRUGS (3)
  1. EYLEA [Suspect]
     Active Substance: AFLIBERCEPT
     Indication: Retinal vein occlusion
     Dosage: 2 MG, EVERY 4 TO 6 WEEKS IN RIGHT EYE; FORMULATION: VIAL
     Dates: start: 20220928, end: 20220928
  2. EYLEA [Suspect]
     Active Substance: AFLIBERCEPT
     Indication: Macular oedema
     Dosage: 2 MG, EVERY 4 TO 6 WEEKS IN RIGHT EYE; FORMULATION: VIAL
     Dates: start: 20221109, end: 20221109
  3. EYLEA [Suspect]
     Active Substance: AFLIBERCEPT
     Dosage: 2 MG, EVERY 4 TO 6 WEEKS IN RIGHT EYE; FORMULATION: VIAL
     Dates: start: 20221228, end: 20221228

REACTIONS (1)
  - Product dose omission issue [Unknown]
